FAERS Safety Report 6566134-0 (Version None)
Quarter: 2010Q1

REPORT INFORMATION
  Report Type: 
  Country: None (occurrence: None)
  Receive Date: 20100202
  Receipt Date: 20100125
  Transmission Date: 20100710
  Serious: Yes (Hospitalization)
  Sender: FDA-Public Use
  Company Number: US-JNJFOC-20091107509

PATIENT
  Sex: Female

DRUGS (1)
  1. LEVAQUIN [Suspect]
     Indication: CELLULITIS
     Route: 065

REACTIONS (5)
  - CARDIAC DISORDER [None]
  - CHEST PAIN [None]
  - HYPERSENSITIVITY [None]
  - RESPIRATORY DISORDER [None]
  - THERAPEUTIC RESPONSE DECREASED [None]
